FAERS Safety Report 12190465 (Version 1)
Quarter: 2016Q1

REPORT INFORMATION
  Report Type: Spontaneous
  Country: US (occurrence: None)
  Receive Date: 20160317
  Receipt Date: 20160317
  Transmission Date: 20160526
  Serious: Yes (Hospitalization)
  Sender: FDA-Public Use
  Company Number: None

PATIENT
  Age: 57 Year
  Sex: Female
  Weight: 100 kg

DRUGS (1)
  1. ALLOPURINOL. [Suspect]
     Active Substance: ALLOPURINOL
     Indication: GOUT
     Route: 048
     Dates: end: 20150715

REACTIONS (6)
  - Drug reaction with eosinophilia and systemic symptoms [None]
  - Rash [None]
  - Nausea [None]
  - Acute kidney injury [None]
  - Hepatic enzyme increased [None]
  - Vomiting [None]

NARRATIVE: CASE EVENT DATE: 20150711
